FAERS Safety Report 7530760-2 (Version None)
Quarter: 2011Q2

REPORT INFORMATION
  Report Type: 
  Country: None (occurrence: None)
  Receive Date: 20110607
  Receipt Date: 20110525
  Transmission Date: 20111010
  Serious: Yes (Other)
  Sender: FDA-Public Use
  Company Number: US-CELGENEUS-163-21880-11053616

PATIENT
  Sex: Male
  Weight: 74.91 kg

DRUGS (9)
  1. DEXAMETHASONE [Concomitant]
     Route: 065
  2. POTASSIUM CHLORIDE [Concomitant]
     Route: 065
  3. NOVOLOG [Concomitant]
     Route: 065
  4. PHONAK [Concomitant]
     Route: 065
  5. TYLENOL-500 [Concomitant]
     Route: 065
  6. WARFARIN SODIUM [Concomitant]
     Route: 065
  7. REVLIMID [Suspect]
     Indication: MULTIPLE MYELOMA
     Dosage: 5 MILLIGRAM
     Route: 048
     Dates: start: 20110520
  8. FUROSEMIDE [Concomitant]
     Route: 065
  9. AMLODIPINE [Concomitant]
     Route: 065

REACTIONS (2)
  - BLOOD GLUCOSE INCREASED [None]
  - RESPIRATORY DISORDER [None]
